APPROVED DRUG PRODUCT: ERYTHROMYCIN
Active Ingredient: ERYTHROMYCIN
Strength: 250MG
Dosage Form/Route: CAPSULE, DELAYED REL PELLETS;ORAL
Application: A062746 | Product #001 | TE Code: AB
Applicant: PHARMOBEDIENT CONSULTING LLC
Approved: Dec 22, 1986 | RLD: No | RS: No | Type: RX